FAERS Safety Report 7584407-X (Version None)
Quarter: 2011Q2

REPORT INFORMATION
  Report Type: 
  Country: None (occurrence: None)
  Receive Date: 20110531
  Receipt Date: 20110218
  Transmission Date: 20111010
  Serious: Yes (Other)
  Sender: FDA-Public Use
  Company Number: WAES 1102USA02621

PATIENT
  Age: 69 Year
  Sex: Female
  Weight: 113.3993 kg

DRUGS (2)
  1. DYAZIDE [Concomitant]
  2. JANUMET [Suspect]
     Indication: DIABETES MELLITUS
     Dosage: /1X /PO
     Route: 048
     Dates: start: 20090101

REACTIONS (2)
  - SWELLING FACE [None]
  - THROAT TIGHTNESS [None]
